FAERS Safety Report 19430165 (Version 2)
Quarter: 2021Q3

REPORT INFORMATION
  Report Type: Report from Study
  Country: None (occurrence: ES)
  Receive Date: 20210618
  Receipt Date: 20210806
  Transmission Date: 20211014
  Serious: Yes (Life-Threatening, Hospitalization, Other)
  Sender: FDA-Public Use
  Company Number: ES-ABBVIE-21K-144-3952761-00

PATIENT
  Age: 5 Year
  Sex: Female
  Weight: 22.5 kg

DRUGS (29)
  1. KETAMINE [Suspect]
     Active Substance: KETAMINE
     Dosage: 25 MG PRN?3.8 MG/KG, 1X/HOUR
     Route: 042
     Dates: start: 20210402, end: 20210403
  2. MOVANTIK [Suspect]
     Active Substance: NALOXEGOL OXALATE
     Indication: PRODUCT USED FOR UNKNOWN INDICATION
     Dosage: 2 DF
     Route: 048
  3. MOVANTIK [Suspect]
     Active Substance: NALOXEGOL OXALATE
     Dosage: UNK
     Route: 048
  4. PROPOFOL. [Suspect]
     Active Substance: PROPOFOL
     Indication: PRODUCT USED FOR UNKNOWN INDICATION
     Dosage: 20 MG PRN
     Route: 042
     Dates: start: 20210401, end: 20210403
  5. ACETAMINOPHEN. [Concomitant]
     Active Substance: ACETAMINOPHEN
     Indication: SEDATION
     Dosage: 15 MG PRN
     Route: 042
     Dates: start: 20210329, end: 20210404
  6. FUROSEMIDE. [Concomitant]
     Active Substance: FUROSEMIDE
     Indication: FLUID OVERLOAD
     Dosage: 5 MG, 3X/DAY
     Route: 065
     Dates: start: 20210331
  7. MIDAZOLAM. [Suspect]
     Active Substance: MIDAZOLAM
     Indication: SEDATION
     Dosage: 4.1 MG/KG, 1X/HOUR
     Route: 042
     Dates: start: 20210329, end: 20210402
  8. ACETAZOLAMIDE. [Concomitant]
     Active Substance: ACETAZOLAMIDE
     Indication: UPPER AIRWAY OBSTRUCTION
     Dosage: 120 MG, 2X/DAY
     Route: 042
     Dates: start: 20210331, end: 20210403
  9. CISATRACURIUM. [Concomitant]
     Active Substance: CISATRACURIUM
     Indication: SEDATION
     Dosage: 3 UG/KG, CONTINUOUS/MIN
     Route: 042
     Dates: start: 20210329, end: 20210404
  10. SEVOFLURANE. [Suspect]
     Active Substance: SEVOFLURANE
     Dosage: 0.15 UG/KG, CONTINUOUS/MIN
     Route: 048
     Dates: start: 20210405, end: 20210407
  11. ONDANSETRON [Concomitant]
     Active Substance: ONDANSETRON
     Indication: PROPHYLAXIS
     Dosage: 25 MG, 4X/DAY
     Route: 042
     Dates: start: 20210329
  12. ACETAZOLAMIDE. [Concomitant]
     Active Substance: ACETAZOLAMIDE
     Indication: FISTULA
     Dosage: 5 MG PRN
     Route: 042
     Dates: start: 20210403, end: 20210403
  13. FENTANYL. [Suspect]
     Active Substance: FENTANYL
     Indication: PRODUCT USED FOR UNKNOWN INDICATION
     Dosage: 3.5 UG/KG, 1X/HOUR?30 UG PRN
     Route: 042
     Dates: start: 20210329, end: 20210402
  14. REMIFENTANIL HYDROCHLORIDE. [Suspect]
     Active Substance: REMIFENTANIL HYDROCHLORIDE
     Indication: WITHDRAWAL SYNDROME
     Dosage: 0.5 MCG/KG CONTINUOUS/MIN
     Route: 042
     Dates: start: 20210405, end: 20210407
  15. REMIFENTANIL HYDROCHLORIDE. [Suspect]
     Active Substance: REMIFENTANIL HYDROCHLORIDE
     Dosage: 5 MG PRN
     Route: 042
     Dates: start: 20210408, end: 20210411
  16. RANITIDINE. [Concomitant]
     Active Substance: RANITIDINE
     Indication: PRODUCT USED FOR UNKNOWN INDICATION
     Dosage: 25 MG, 4X/DAY
     Route: 042
     Dates: start: 20210329
  17. ROCURONIUM [Concomitant]
     Active Substance: ROCURONIUM BROMIDE
     Indication: UPPER AIRWAY OBSTRUCTION
     Dosage: 15 MG PRN
     Route: 065
     Dates: start: 20210329, end: 20210404
  18. ROCURONIUM [Concomitant]
     Active Substance: ROCURONIUM BROMIDE
     Dosage: 7 MG PRN
     Route: 042
     Dates: start: 20210403, end: 20210404
  19. FENTANYL. [Suspect]
     Active Substance: FENTANYL
     Dosage: 25 UG PRN
     Route: 042
     Dates: start: 20210403, end: 20210403
  20. FENTANYL. [Suspect]
     Active Substance: FENTANYL
     Dosage: 2.5 UG/KG, 1X/HOUR
     Route: 042
     Dates: start: 20210403, end: 20210405
  21. KETAMINE [Suspect]
     Active Substance: KETAMINE
     Indication: SEDATION
     Dosage: 1.3 UG/KG, 1X/HOUR
     Route: 042
     Dates: start: 20210330, end: 2021
  22. MACROGOL [Concomitant]
     Active Substance: POLYETHYLENE GLYCOLS
     Indication: CONSTIPATION
     Dosage: 6.9 G, 3X/DAY
     Route: 065
     Dates: start: 20210408
  23. SEVOFLURANE. [Suspect]
     Active Substance: SEVOFLURANE
     Indication: SEDATION
     Dosage: 10 ML, 1X/HOUR?0.2 ML PRN
     Route: 048
     Dates: start: 20210403, end: 20210407
  24. DEXMEDETOMIDINE. [Suspect]
     Active Substance: DEXMEDETOMIDINE
     Indication: PRODUCT USED FOR UNKNOWN INDICATION
     Dosage: UNK
     Route: 065
  25. ONDANSETRON [Concomitant]
     Active Substance: ONDANSETRON
     Indication: FEEDING INTOLERANCE
     Dosage: 4 MG PRN
     Route: 042
     Dates: start: 20210403
  26. ACETAMINOPHEN. [Concomitant]
     Active Substance: ACETAMINOPHEN
     Indication: ANALGESIC THERAPY
     Dosage: 350 MG, 4X/DAY
     Route: 042
     Dates: start: 20210329
  27. AMOXICILLIN+CLAVULANIC ACID [Concomitant]
     Active Substance: AMOXICILLIN\CLAVULANIC ACID
     Indication: PROPHYLAXIS
     Dosage: 575 MG, 3X/DAY
     Route: 042
     Dates: start: 20210330, end: 20210403
  28. MIDAZOLAM. [Suspect]
     Active Substance: MIDAZOLAM
     Dosage: 0.34 MG/KG, 1X/HOUR?2.5 MG PRN
     Route: 042
     Dates: start: 20210402, end: 20210404
  29. AMOXICILLIN+CLAVULANIC ACID [Concomitant]
     Active Substance: AMOXICILLIN\CLAVULANIC ACID
     Dosage: 600 MG, 4X/DAY
     Route: 042
     Dates: start: 20210403

REACTIONS (3)
  - Withdrawal syndrome [Recovered/Resolved]
  - Off label use [Unknown]
  - Laryngeal obstruction [Recovered/Resolved]

NARRATIVE: CASE EVENT DATE: 20210403
